FAERS Safety Report 8799789 (Version 1)
Quarter: 2012Q4

REPORT INFORMATION
  Report Type: Spontaneous
  Country: US (occurrence: None)
  Receive Date: 20120917
  Receipt Date: 20120917
  Transmission Date: 20130627
  Serious: Yes (Other)
  Sender: FDA-Public Use
  Company Number: ADE12-089

PATIENT
  Age: 47 Year
  Sex: Female

DRUGS (1)
  1. ROCURONIUM BROMIDE [Suspect]
     Route: 042
     Dates: start: 20120904, end: 20120904

REACTIONS (1)
  - Drug ineffective [None]
